FAERS Safety Report 10233336 (Version 1)
Quarter: 2014Q2

REPORT INFORMATION
  Report Type: Spontaneous
  Country: US (occurrence: US)
  Receive Date: 20140612
  Receipt Date: 20140612
  Transmission Date: 20141212
  Serious: Yes (Hospitalization, Other)
  Sender: FDA-Public Use
  Company Number: US-PFIZER INC-2014157424

PATIENT
  Age: 51 Year
  Sex: Male
  Weight: 108.84 kg

DRUGS (1)
  1. ZYVOX [Suspect]
     Indication: INFECTION
     Dosage: UNK
     Route: 042
     Dates: end: 201405

REACTIONS (7)
  - Infection [Unknown]
  - Convulsion [Unknown]
  - Blindness [Unknown]
  - Inappropriate schedule of drug administration [Unknown]
  - Drug tolerance [Unknown]
  - Pyrexia [Unknown]
  - Amnesia [Unknown]
